FAERS Safety Report 8492779-7 (Version None)
Quarter: 2012Q3

REPORT INFORMATION
  Report Type: 
  Country: None (occurrence: None)
  Receive Date: 20120706
  Receipt Date: 20120627
  Transmission Date: 20120928
  Serious: Yes (Other)
  Sender: FDA-Public Use
  Company Number: US-JNJFOC-20120614124

PATIENT
  Sex: Male
  Weight: 109.77 kg

DRUGS (9)
  1. XARELTO [Suspect]
     Indication: ATRIAL FIBRILLATION
     Route: 048
     Dates: start: 20120624, end: 20120624
  2. LIPITOR [Concomitant]
     Indication: BLOOD CHOLESTEROL ABNORMAL
     Route: 048
  3. BENICAR [Concomitant]
     Indication: BLOOD PRESSURE
     Route: 048
  4. LUTEIN [Concomitant]
     Indication: EYE DISORDER
     Route: 048
  5. FISH OIL [Concomitant]
     Indication: EYE DISORDER
     Route: 048
  6. XARELTO [Suspect]
     Indication: CEREBROVASCULAR ACCIDENT PROPHYLAXIS
     Route: 048
     Dates: start: 20120624, end: 20120624
  7. ACETAMINOPHEN [Concomitant]
     Indication: PAIN
     Route: 048
     Dates: start: 20120125
  8. AVASTIN [Concomitant]
     Indication: MACULAR DEGENERATION
     Route: 031
     Dates: start: 20100101
  9. OCUVIT [Concomitant]
     Indication: MACULAR DEGENERATION
     Route: 048

REACTIONS (4)
  - INTERNATIONAL NORMALISED RATIO INCREASED [None]
  - HYPOAESTHESIA [None]
  - DISCOMFORT [None]
  - PAIN IN EXTREMITY [None]
